FAERS Safety Report 8089374-0 (Version None)
Quarter: 2012Q1

REPORT INFORMATION
  Report Type: 
  Country: None (occurrence: None)
  Receive Date: 20120128
  Receipt Date: 20110701
  Transmission Date: 20120608
  Serious: No
  Sender: FDA-Public Use
  Company Number: US-ABBOTT-11P-163-0835778-00

PATIENT
  Sex: Female
  Weight: 72.186 kg

DRUGS (4)
  1. HUMIRA [Suspect]
     Dates: start: 20110601
  2. PREDNISONE TAB [Concomitant]
     Indication: CROHN'S DISEASE
  3. MANY CONCOMITANT MEDICATIONS [Concomitant]
     Indication: PRODUCT USED FOR UNKNOWN INDICATION
  4. HUMIRA [Suspect]
     Indication: CROHN'S DISEASE
     Dates: start: 20090101, end: 20110601

REACTIONS (3)
  - ORAL CANDIDIASIS [None]
  - DYSPHAGIA [None]
  - DIARRHOEA [None]
